FAERS Safety Report 13404465 (Version 3)
Quarter: 2017Q2

REPORT INFORMATION
  Report Type: Report from Study
  Country: None (occurrence: TW)
  Receive Date: 20170405
  Receipt Date: 20170605
  Transmission Date: 20170830
  Serious: Yes (Hospitalization)
  Sender: FDA-Public Use
  Company Number: TW-ABBVIE-17K-153-1931141-00

PATIENT
  Age: 36 Year
  Sex: Male
  Weight: 59 kg

DRUGS (2)
  1. HUMIRA [Suspect]
     Active Substance: ADALIMUMAB
     Indication: CROHN^S DISEASE
     Route: 058
     Dates: start: 20170104, end: 20170206
  2. HUMIRA [Suspect]
     Active Substance: ADALIMUMAB
     Route: 058
     Dates: start: 20170407

REACTIONS (7)
  - Crohn^s disease [Recovering/Resolving]
  - Fistula of small intestine [Recovering/Resolving]
  - Gastrointestinal fistula [Recovering/Resolving]
  - Small intestinal obstruction [Recovering/Resolving]
  - Intestinal dilatation [Recovering/Resolving]
  - Cystitis noninfective [Recovering/Resolving]
  - Bladder disorder [Unknown]

NARRATIVE: CASE EVENT DATE: 20170220
